FAERS Safety Report 19226131 (Version 1)
Quarter: 2021Q2

REPORT INFORMATION
  Report Type: Spontaneous
  Country: US (occurrence: US)
  Receive Date: 20210505
  Receipt Date: 20210505
  Transmission Date: 20210717
  Serious: No
  Sender: FDA-Public Use
  Company Number: US-ROCHE-2717934

PATIENT
  Sex: Female

DRUGS (14)
  1. AVASTIN [Suspect]
     Active Substance: BEVACIZUMAB
     Indication: PRODUCT USED FOR UNKNOWN INDICATION
     Route: 065
  2. ATORVASTATIN [Concomitant]
     Active Substance: ATORVASTATIN
  3. ACYCLOVIR. [Concomitant]
     Active Substance: ACYCLOVIR
  4. ONDANSETRON [Concomitant]
     Active Substance: ONDANSETRON
  5. PROCHLORPERAZINE. [Concomitant]
     Active Substance: PROCHLORPERAZINE
  6. LONSURF [Suspect]
     Active Substance: TIPIRACIL HYDROCHLORIDE\TRIFLURIDINE
     Indication: COLON CANCER
     Route: 048
     Dates: start: 20200512
  7. AMOXIKLAV [Concomitant]
  8. LORAZEPAM. [Concomitant]
     Active Substance: LORAZEPAM
  9. OLOPATADINE. [Concomitant]
     Active Substance: OLOPATADINE
  10. TRIAMCINOLONE [Concomitant]
     Active Substance: TRIAMCINOLONE
  11. AMLODIPINE [Concomitant]
     Active Substance: AMLODIPINE BESYLATE
  12. XARELTO [Concomitant]
     Active Substance: RIVAROXABAN
  13. METHYLPRED [Concomitant]
     Active Substance: METHYLPREDNISOLONE
  14. BISOPROLOL FUMERATE [Concomitant]
     Active Substance: BISOPROLOL FUMARATE

REACTIONS (13)
  - Rash macular [Recovering/Resolving]
  - Arthralgia [Not Recovered/Not Resolved]
  - Dyspnoea [Recovered/Resolved]
  - Nausea [Not Recovered/Not Resolved]
  - Urticaria [Not Recovered/Not Resolved]
  - Muscle spasms [Unknown]
  - Rash pruritic [Not Recovered/Not Resolved]
  - Inappropriate schedule of product administration [Unknown]
  - Rash [Not Recovered/Not Resolved]
  - Tongue disorder [Not Recovered/Not Resolved]
  - Haemorrhoidal haemorrhage [Not Recovered/Not Resolved]
  - Headache [Not Recovered/Not Resolved]
  - Myalgia [Not Recovered/Not Resolved]
